FAERS Safety Report 18637649 (Version 8)
Quarter: 2023Q2

REPORT INFORMATION
  Report Type: Report from Study
  Country: US (occurrence: US)
  Receive Date: 20201218
  Receipt Date: 20230605
  Transmission Date: 20230722
  Serious: Yes (Other)
  Sender: FDA-Public Use
  Company Number: US-TAKEDA-US202033832

PATIENT
  Age: 12 Year
  Sex: Male
  Weight: 76 kg

DRUGS (19)
  1. IDURSULFASE [Suspect]
     Active Substance: IDURSULFASE
     Indication: Mucopolysaccharidosis II
     Dosage: 36 MILLIGRAM, 1/WEEK
     Route: 042
     Dates: start: 20120622
  2. IDURSULFASE [Suspect]
     Active Substance: IDURSULFASE
     Dosage: 48 MILLIGRAM, 1/WEEK
     Route: 042
  3. IDURSULFASE [Suspect]
     Active Substance: IDURSULFASE
     Dosage: 42 MILLIGRAM, 1/WEEK
     Route: 042
  4. IDURSULFASE [Suspect]
     Active Substance: IDURSULFASE
     Dosage: 54 MILLIGRAM, 1/WEEK
     Route: 042
  5. IDURSULFASE [Suspect]
     Active Substance: IDURSULFASE
     Dosage: 42 MILLIGRAM, 1/WEEK
     Route: 042
     Dates: start: 20121206
  6. DIPHENHYDRAMINE HYDROCHLORIDE [Concomitant]
     Active Substance: DIPHENHYDRAMINE HYDROCHLORIDE
  7. FAMOTIDINE [Concomitant]
     Active Substance: FAMOTIDINE
  8. HEPARIN [Concomitant]
     Active Substance: HEPARIN SODIUM
  9. LIDOCAINE [Concomitant]
     Active Substance: LIDOCAINE
  10. METHYLPREDNISOLONE [Concomitant]
     Active Substance: METHYLPREDNISOLONE
  11. SODIUM CHLORIDE [Concomitant]
     Active Substance: SODIUM CHLORIDE
  12. EPINEPHRINE [Concomitant]
     Active Substance: EPINEPHRINE
  13. FLUCONAZOLE [Concomitant]
     Active Substance: FLUCONAZOLE
  14. MIRALAX [Concomitant]
     Active Substance: POLYETHYLENE GLYCOL 3350
  15. SODIUM CHLORIDE [Concomitant]
     Active Substance: SODIUM CHLORIDE
  16. FLUCELVAX QUADRIVALENT 2017/2018 (INFLUENZA A VIRUS A/DARWIN/11/2021 ( [Concomitant]
     Active Substance: INFLUENZA A VIRUS A/DARWIN/11/2021 (H3N2) ANTIGEN (MDCK CELL DERIVED, PROPIOLACTONE INACTIVATED)\INF
  17. Centamin [Concomitant]
  18. Lmx [Concomitant]
  19. GARDASIL [Concomitant]
     Active Substance: HUMAN PAPILLOMAVIRUS QUADRIVALENT (TYPES 6, 11, 16, AND 18) VACCINE, RECOMBINANT
     Dosage: UNK
     Route: 065

REACTIONS (9)
  - Surgery [Recovered/Resolved]
  - Localised infection [Recovered/Resolved]
  - Folliculitis [Not Recovered/Not Resolved]
  - Skin papilloma [Unknown]
  - Ingrowing nail [Recovered/Resolved]
  - Oral infection [Recovered/Resolved]
  - Ligament sprain [Unknown]
  - Nasopharyngitis [Unknown]
  - Product dose omission issue [Unknown]

NARRATIVE: CASE EVENT DATE: 20200923
